FAERS Safety Report 6274386 (Version 14)
Quarter: 2013Q3

REPORT INFORMATION
  Report Type: Spontaneous
  Country: US (occurrence: US)
  Receive Date: 20070329
  Receipt Date: 20130808
  Transmission Date: 20140515
  Serious: Yes (Hospitalization, Disabling, Other)
  Sender: FDA-Public Use
  Company Number: PHEH2007US03348

PATIENT
  Age: 60 Year
  Sex: Male
  Weight: 107.48 kg

DRUGS (66)
  1. AREDIA [Suspect]
     Dosage: 90 MG
     Route: 042
     Dates: start: 200006
  2. ZOMETA [Suspect]
     Dosage: 4 MG, QMO
     Route: 042
  3. WELLBUTRIN [Concomitant]
     Dosage: 150 MG, BID
  4. ZOCOR ^DIECKMANN^ [Concomitant]
     Dosage: 20 MG, QD
  5. NICOTROL [Concomitant]
  6. TIMOPTIC [Concomitant]
  7. NAPROSYN [Concomitant]
     Dosage: 500 MG, BID
  8. CHEMOTHERAPEUTICS NOS [Concomitant]
     Dates: start: 200006
  9. NEFAZODONE [Concomitant]
  10. BUPROPION [Concomitant]
  11. SIMVASTATIN [Concomitant]
  12. COUMADIN ^BOOTS^ [Concomitant]
  13. PENICILLIN ^GRUNENTHAL^ [Concomitant]
     Dates: start: 200002
  14. ASPIRIN ^BAYER^ [Concomitant]
  15. HEPARIN [Concomitant]
  16. PREVACID [Concomitant]
  17. VITAMIN B12 [Concomitant]
  18. FOLIC ACID [Concomitant]
  19. ATENOLOL [Concomitant]
  20. SERZONE [Concomitant]
  21. ALTACE [Concomitant]
  22. LIPITOR                                 /NET/ [Concomitant]
  23. PROVIGIL [Concomitant]
  24. NEUPOGEN [Concomitant]
  25. TICLID [Concomitant]
  26. DIPYRIDAMOLE [Concomitant]
  27. PROTONIX ^PHARMACIA^ [Concomitant]
  28. NEURONTIN [Concomitant]
  29. ADVAIR [Concomitant]
  30. CRESTOR [Concomitant]
     Dosage: 20 MG
  31. FIBERCON [Concomitant]
  32. TRICOR [Concomitant]
  33. XALATAN [Concomitant]
  34. COMBIVENT [Concomitant]
  35. TRAVATAN [Concomitant]
  36. SULFAMETHOXAZOLE [Concomitant]
  37. PROTONIX [Concomitant]
  38. EFFEXOR [Concomitant]
  39. LORAZEPAM [Concomitant]
  40. PNEUMOVAX [Concomitant]
  41. VORICONAZOLE [Concomitant]
     Dosage: 400 MG, UNK
  42. OXYCODONE [Concomitant]
  43. ONDANSETRON [Concomitant]
     Indication: NAUSEA
  44. NYSTATIN [Concomitant]
  45. LOPERAMIDE [Concomitant]
  46. GABAPENTIN [Concomitant]
  47. ACYCLOVIR [Concomitant]
  48. MIRTAZAPINE [Concomitant]
  49. CALCIUM CARBONATE [Concomitant]
  50. VELCADE [Concomitant]
  51. VALTREX [Concomitant]
  52. REGLAN                                  /USA/ [Concomitant]
  53. ALLOPURINOL [Concomitant]
  54. VIAGRA [Concomitant]
  55. DIFLUCAN [Concomitant]
  56. PREDNISONE [Concomitant]
  57. AUGMENTIN [Concomitant]
  58. REMERON [Concomitant]
  59. ENSURE [Concomitant]
  60. TIGAN [Concomitant]
  61. AMBIEN [Concomitant]
  62. ZESTRIL [Concomitant]
  63. OXYCONTIN [Concomitant]
  64. MORPHINE [Concomitant]
  65. THALIDOMIDE [Concomitant]
  66. CITALOPRAM [Concomitant]

REACTIONS (94)
  - Osteonecrosis of jaw [Unknown]
  - General physical health deterioration [Unknown]
  - Pain [Unknown]
  - Anxiety [Unknown]
  - Decreased interest [Unknown]
  - Swelling face [Unknown]
  - Lip swelling [Unknown]
  - Oesophageal rupture [Unknown]
  - Dizziness [Unknown]
  - Balance disorder [Unknown]
  - Hallucination, visual [Unknown]
  - Dysthymic disorder [Unknown]
  - Arteriosclerosis coronary artery [Unknown]
  - Open angle glaucoma [Unknown]
  - Goitre [Unknown]
  - Intervertebral disc protrusion [Unknown]
  - Benign prostatic hyperplasia [Unknown]
  - Diarrhoea [Unknown]
  - Diverticulum [Unknown]
  - Large intestine polyp [Unknown]
  - Hepatic cyst [Unknown]
  - Renal cyst [Unknown]
  - Bulimia nervosa [Unknown]
  - Chronic obstructive pulmonary disease [Unknown]
  - Blood immunoglobulin A decreased [Unknown]
  - Blood immunoglobulin G decreased [Unknown]
  - Bronchiectasis [Recovering/Resolving]
  - Lung infiltration [Unknown]
  - Abdominal pain lower [Unknown]
  - Fluid overload [Unknown]
  - Respiratory distress [Unknown]
  - Pyrexia [Unknown]
  - Atelectasis [Unknown]
  - Pulmonary oedema [Unknown]
  - Blindness unilateral [Unknown]
  - Jaundice [Unknown]
  - Dyspnoea [Unknown]
  - Ileus paralytic [Unknown]
  - Reticulocytosis [Unknown]
  - Pneumonia [Recovering/Resolving]
  - Productive cough [Unknown]
  - Malnutrition [Unknown]
  - Pelvic abscess [Unknown]
  - Myopia [Unknown]
  - Vitamin B complex deficiency [Unknown]
  - Pancytopenia [Unknown]
  - Candida infection [Unknown]
  - Hepatitis C [Unknown]
  - Cellulitis [Unknown]
  - Colonic abscess [Unknown]
  - Megakaryocytes increased [Unknown]
  - Depression [Unknown]
  - Lymphopenia [Unknown]
  - Sepsis syndrome [Recovering/Resolving]
  - Sinusitis [Unknown]
  - Meibomianitis [Unknown]
  - Cutis laxa [Unknown]
  - Astigmatism [Unknown]
  - Presbyopia [Unknown]
  - Lymphadenopathy mediastinal [Unknown]
  - Hyperlipidaemia [Unknown]
  - Hypertension [Recovered/Resolved]
  - Meniscus injury [Unknown]
  - Osteoarthritis [Unknown]
  - Adrenal disorder [Unknown]
  - Pinguecula [Unknown]
  - Panic attack [Unknown]
  - Upper respiratory tract infection [Unknown]
  - Demyelination [Unknown]
  - Facial pain [Unknown]
  - Nausea [Unknown]
  - Vomiting [Unknown]
  - Nodule [Unknown]
  - Cough [Unknown]
  - Fatigue [Unknown]
  - Deep vein thrombosis [Unknown]
  - Neuropathy peripheral [Unknown]
  - Dehydration [Unknown]
  - Sleep disorder [Unknown]
  - Eating disorder [Unknown]
  - Anaemia [Unknown]
  - Psychomotor retardation [Unknown]
  - Abscess intestinal [Unknown]
  - Leukocytosis [Unknown]
  - Arthralgia [Unknown]
  - Decreased appetite [Unknown]
  - Convulsion [Unknown]
  - Tinea pedis [Unknown]
  - Abdominal abscess [Unknown]
  - Emphysema [Unknown]
  - Gastrooesophageal reflux disease [Unknown]
  - Respiratory alkalosis [Unknown]
  - Hypoxia [Unknown]
  - Fall [Unknown]
